FAERS Safety Report 6460881-7 (Version None)
Quarter: 2009Q4

REPORT INFORMATION
  Report Type: 
  Country: None (occurrence: None)
  Receive Date: 20091125
  Receipt Date: 20091125
  Transmission Date: 20100525
  Serious: No
  Sender: FDA-Public Use
  Company Number: None

PATIENT
  Age: 40 Year
  Sex: Male
  Weight: 82.9 kg

DRUGS (1)
  1. TIGECYCLINE [Suspect]
     Indication: STAPHYLOCOCCAL INFECTION
     Dosage: 50 MG Q12H IV
     Route: 041
     Dates: start: 20091115, end: 20091123

REACTIONS (3)
  - HYPERSENSITIVITY [None]
  - PRURITUS [None]
  - RASH [None]
